FAERS Safety Report 6249777-3 (Version None)
Quarter: 2009Q2

REPORT INFORMATION
  Report Type: 
  Country: None (occurrence: None)
  Receive Date: 20090629
  Receipt Date: 20090619
  Transmission Date: 20091009
  Serious: Yes (Hospitalization, Other)
  Sender: FDA-Public Use
  Company Number: MX-TEVA-198996ISR

PATIENT
  Sex: Male

DRUGS (6)
  1. IRINOTECAN HCL [Suspect]
     Indication: COLORECTAL CANCER
     Route: 042
     Dates: start: 20080212, end: 20090508
  2. FLUOROURACIL [Suspect]
     Indication: COLORECTAL CANCER
     Dosage: UNIT DOSE: 280MG AND 2900MG
     Dates: start: 20080212, end: 20090510
  3. FOLINIC ACID [Suspect]
     Indication: COLORECTAL CANCER
     Route: 042
     Dates: start: 20080212, end: 20090508
  4. SUNITINB MALATE [Suspect]
     Indication: COLORECTAL CANCER
     Route: 048
     Dates: start: 20090528, end: 20090609
  5. CEFUROXIME [Concomitant]
     Dates: start: 20090523, end: 20090609
  6. DIAZEPAM [Concomitant]
     Dates: start: 20090607, end: 20090609

REACTIONS (1)
  - ORCHITIS [None]
